FAERS Safety Report 4602902-X (Version None)
Quarter: 2005Q1

REPORT INFORMATION
  Report Type: 
  Country: None (occurrence: None)
  Receive Date: 20050309
  Receipt Date: 20050301
  Transmission Date: 20050727
  Serious: Yes (Hospitalization)
  Sender: FDA-Public Use
  Company Number: CN-GLAXOSMITHKLINE-B0373911A

PATIENT
  Age: 73 Year
  Sex: Male

DRUGS (1)
  1. HEPTODIN [Suspect]
     Indication: HEPATITIS B
     Dosage: 100MG PER DAY
     Route: 048
     Dates: start: 20050221

REACTIONS (5)
  - INFLUENZA LIKE ILLNESS [None]
  - LUNG INFECTION [None]
  - NASAL CONGESTION [None]
  - PHARYNGOLARYNGEAL PAIN [None]
  - PYREXIA [None]
